FAERS Safety Report 15746392 (Version 3)
Quarter: 2019Q2

REPORT INFORMATION
  Report Type: Spontaneous
  Country: US (occurrence: US)
  Receive Date: 20181220
  Receipt Date: 20190405
  Transmission Date: 20190711
  Serious: Yes (Other)
  Sender: FDA-Public Use
  Company Number: US-SA-2018SA341803

PATIENT
  Age: 52 Year
  Sex: Female
  Weight: 83.91 kg

DRUGS (7)
  1. HERCEPTIN [Concomitant]
     Active Substance: TRASTUZUMAB
  2. TAXOTERE [Suspect]
     Active Substance: DOCETAXEL
     Indication: BREAST CANCER FEMALE
     Dosage: SINGLE DOSE
     Route: 042
     Dates: start: 20120216, end: 20120216
  3. LISINOPRIL. [Concomitant]
     Active Substance: LISINOPRIL
  4. PARAPLATIN [Concomitant]
     Active Substance: CARBOPLATIN
  5. CYCLOPHOSPHAMIDE. [Concomitant]
     Active Substance: CYCLOPHOSPHAMIDE
     Dosage: 500 MG, BID
     Route: 048
  6. ABRAXANE [Concomitant]
     Active Substance: PACLITAXEL
  7. LANTUS [Concomitant]
     Active Substance: INSULIN GLARGINE

REACTIONS (1)
  - Alopecia [Recovering/Resolving]

NARRATIVE: CASE EVENT DATE: 201208
